FAERS Safety Report 8427497-4 (Version None)
Quarter: 2012Q2

REPORT INFORMATION
  Report Type: 
  Country: None (occurrence: None)
  Receive Date: 20120323
  Receipt Date: 20110804
  Transmission Date: 20120825
  Serious: Yes (Hospitalization)
  Sender: FDA-Public Use
  Company Number: 163-21880-11080606

PATIENT
  Age: 78 Year
  Sex: Male

DRUGS (8)
  1. CYCLOPHOSPHAMIDE [Concomitant]
  2. METOPROLOL SUCCINATE [Concomitant]
  3. VELCADE [Concomitant]
  4. PEPCID [Concomitant]
  5. PREDNISONE TAB [Concomitant]
  6. MULTIVITAMIN [Concomitant]
  7. REVLIMID [Suspect]
     Indication: MULTIPLE MYELOMA
     Dosage: 10 MG, 1 IN 1 D, PO
     Route: 048
     Dates: start: 20110711
  8. COUMADIN [Concomitant]

REACTIONS (1)
  - EPISTAXIS [None]
